FAERS Safety Report 8315688-2 (Version None)
Quarter: 2012Q2

REPORT INFORMATION
  Report Type: 
  Country: None (occurrence: None)
  Receive Date: 20120426
  Receipt Date: 20120413
  Transmission Date: 20120825
  Serious: Yes (Other)
  Sender: FDA-Public Use
  Company Number: PHHY2012GB017122

PATIENT
  Age: 75 Year
  Sex: Male

DRUGS (12)
  1. SYMBICORT [Concomitant]
  2. FORMOTEROL FUMARATE [Suspect]
  3. VERAPAMIL [Suspect]
     Indication: ATRIAL FIBRILLATION
  4. FUROSEMIDE [Suspect]
  5. ATORVASTATIN [Suspect]
  6. WARFARIN SODIUM [Suspect]
     Indication: ATRIAL FIBRILLATION
  7. SPIRIVA [Concomitant]
  8. RAMIPRIL [Suspect]
  9. CYSTEINE HYDROCHLORIDE [Suspect]
  10. METFORMIN HCL [Suspect]
  11. ALBUTEROL [Suspect]
  12. PREDNISOLONE [Suspect]

REACTIONS (1)
  - HALLUCINATION [None]
